FAERS Safety Report 17466100 (Version 2)
Quarter: 2020Q1

REPORT INFORMATION
  Report Type: Spontaneous
  Country: GB (occurrence: GB)
  Receive Date: 20200227
  Receipt Date: 20200304
  Transmission Date: 20200409
  Serious: Yes (Life-Threatening, Hospitalization, Other)
  Sender: FDA-Public Use
  Company Number: GB-LUPIN PHARMACEUTICALS INC.-2020-00947

PATIENT
  Age: 72 Year
  Sex: Male

DRUGS (1)
  1. ATORVASTATIN CALCIUM. [Suspect]
     Active Substance: ATORVASTATIN CALCIUM
     Indication: HYPERCHOLESTEROLAEMIA
     Dosage: 20 MILLIGRAM
     Route: 065

REACTIONS (5)
  - Pneumonia [Recovering/Resolving]
  - Dysphonia [Recovering/Resolving]
  - Immune-mediated myositis [Recovering/Resolving]
  - Blood creatine phosphokinase increased [Recovered/Resolved]
  - Muscular weakness [Recovering/Resolving]
